FAERS Safety Report 7938595-3 (Version None)
Quarter: 2011Q4

REPORT INFORMATION
  Report Type: 
  Country: None (occurrence: None)
  Receive Date: 20111123
  Receipt Date: 20111118
  Transmission Date: 20120403
  Serious: Yes (Hospitalization)
  Sender: FDA-Public Use
  Company Number: PL-GILEAD-2009-0023207

PATIENT
  Sex: Male

DRUGS (9)
  1. EFAVIRENZ PLACEBO [Concomitant]
     Indication: HIV INFECTION
     Dosage: UNK
     Dates: start: 20090602, end: 20090727
  2. QUINAPRIL [Concomitant]
     Dates: start: 20090217
  3. ACETYLSALICYLIC ACID SRT [Concomitant]
     Dates: start: 20090217
  4. METAMIZOLE [Concomitant]
     Dates: start: 20090613, end: 20090615
  5. KETOPROFEN [Concomitant]
     Dates: end: 20090624
  6. BLINDED EMTRICITABINE/TENOFOVIR DISOPROXIL FUMARATE [Suspect]
     Indication: HIV INFECTION
     Route: 048
     Dates: start: 20090629, end: 20090727
  7. BISOPROLOL FUMARATE [Concomitant]
     Dates: start: 20090217
  8. AMLODIPINE [Concomitant]
     Dates: start: 20090217
  9. BLINDED EMTRICITABINE/TENOFOVIR DISOPROXIL FUMARATE [Suspect]
     Route: 048
     Dates: start: 20090602, end: 20090627

REACTIONS (2)
  - PYELONEPHRITIS [None]
  - LEUKOCYTURIA [None]
